FAERS Safety Report 7106251-X (Version None)
Quarter: 2010Q4

REPORT INFORMATION
  Report Type: 
  Country: None (occurrence: None)
  Receive Date: 20101116
  Receipt Date: 20101111
  Transmission Date: 20110411
  Serious: Yes (Hospitalization, Other)
  Sender: FDA-Public Use
  Company Number: US-ROXANE LABORATORIES, INC.-2010-RO-01492RO

PATIENT
  Age: 24 Year
  Sex: Male

DRUGS (7)
  1. LITHIUM CARBONATE [Suspect]
     Indication: DEPRESSION
  2. MIDAZOLAM [Suspect]
     Route: 042
  3. ECSTASY [Suspect]
  4. PHENELZINE [Suspect]
     Indication: DEPRESSION
  5. FENTANYL [Suspect]
     Dosage: 100 MCG
  6. PROPOFOL [Suspect]
     Dosage: 200 MG
  7. SUXAMETHONIUM [Suspect]
     Dosage: 100 MG

REACTIONS (13)
  - ALCOHOL USE [None]
  - BLOOD CREATINE PHOSPHOKINASE INCREASED [None]
  - CLONUS [None]
  - DRUG INEFFECTIVE [None]
  - HYPERHIDROSIS [None]
  - ILEUS [None]
  - LOSS OF CONSCIOUSNESS [None]
  - MUSCLE TWITCHING [None]
  - MYDRIASIS [None]
  - MYOCLONUS [None]
  - NYSTAGMUS [None]
  - SEROTONIN SYNDROME [None]
  - TACHYPNOEA [None]
